FAERS Safety Report 4553443-X (Version None)
Quarter: 2005Q1

REPORT INFORMATION
  Report Type: 
  Country: None (occurrence: None)
  Receive Date: 20050112
  Receipt Date: 20041224
  Transmission Date: 20050727
  Serious: Yes (Hospitalization)
  Sender: FDA-Public Use
  Company Number: FR_041205502

PATIENT
  Age: 30 Year
  Sex: Male

DRUGS (8)
  1. ZYPREXA [Suspect]
     Route: 048
     Dates: start: 20041005, end: 20041115
  2. PROZAC [Suspect]
     Dosage: 20 MG/1 DAY
     Route: 048
     Dates: end: 20041105
  3. DEPAKENE [Concomitant]
  4. METHADONE HCL [Concomitant]
  5. COCAINE HYDROCHLORIDE [Concomitant]
  6. SUBUTEX [Concomitant]
  7. IMOVANE                    (ZOPICLONE) [Concomitant]
  8. HEPATITIS B VACCINE [Concomitant]

REACTIONS (11)
  - BLOOD COPPER INCREASED [None]
  - CHOLESTASIS [None]
  - HEADACHE [None]
  - HEPATITIS [None]
  - HEPATITIS C [None]
  - HEPATOCELLULAR DAMAGE [None]
  - INFLUENZA LIKE ILLNESS [None]
  - MYALGIA [None]
  - NAUSEA [None]
  - THROMBOCYTOPENIA [None]
  - VOMITING [None]
